FAERS Safety Report 16728006 (Version 1)
Quarter: 2019Q3

REPORT INFORMATION
  Report Type: Other
  Country: ES (occurrence: ES)
  Receive Date: 20190822
  Receipt Date: 20190822
  Transmission Date: 20191005
  Serious: Yes (Other)
  Sender: FDA-Public Use
  Company Number: ES-CELLTRION INC.-2019ES023867

PATIENT

DRUGS (12)
  1. RITUXIMAB (UNKNOWN) [Suspect]
     Active Substance: RITUXIMAB
     Indication: DIFFUSE LARGE B-CELL LYMPHOMA
     Route: 065
  2. GEMCITABINE. [Concomitant]
     Active Substance: GEMCITABINE
  3. IFOSFAMIDE. [Concomitant]
     Active Substance: IFOSFAMIDE
  4. MESNA. [Concomitant]
     Active Substance: MESNA
  5. VINORELBINE [Concomitant]
     Active Substance: VINORELBINE TARTRATE
  6. OXALIPLATIN. [Concomitant]
     Active Substance: OXALIPLATIN
  7. CYCLOPHOSPHAMIDE. [Concomitant]
     Active Substance: CYCLOPHOSPHAMIDE
  8. PREDNISONE. [Concomitant]
     Active Substance: PREDNISONE
  9. DOXORUBICIN [Concomitant]
     Active Substance: DOXORUBICIN
  10. ETOPOSIDE. [Concomitant]
     Active Substance: ETOPOSIDE
  11. MITOXANTRONE [Concomitant]
     Active Substance: MITOXANTRONE HYDROCHLORIDE
  12. VINCRISTINE [Concomitant]
     Active Substance: VINCRISTINE

REACTIONS (2)
  - Cytopenia [Unknown]
  - Disease progression [Unknown]
